FAERS Safety Report 8388763-4 (Version None)
Quarter: 2012Q2

REPORT INFORMATION
  Report Type: 
  Country: None (occurrence: None)
  Receive Date: 20120528
  Receipt Date: 20120514
  Transmission Date: 20120825
  Serious: Yes (Hospitalization)
  Sender: FDA-Public Use
  Company Number: GR-BRISTOL-MYERS SQUIBB COMPANY-16575441

PATIENT
  Age: 61 Year
  Sex: Female

DRUGS (5)
  1. ENALAPRIL MALEATE [Concomitant]
  2. HYDROCHLOROTHIAZIDE [Concomitant]
  3. METFORMIN HCL [Suspect]
  4. DICLOFENAC SODIUM [Suspect]
     Indication: KNEE OPERATION
  5. GLIMEPIRIDE [Concomitant]

REACTIONS (10)
  - DECREASED APPETITE [None]
  - ABDOMINAL DISCOMFORT [None]
  - HAEMODIALYSIS [None]
  - GENERAL PHYSICAL HEALTH DETERIORATION [None]
  - LACTIC ACIDOSIS [None]
  - SOMNOLENCE [None]
  - DISORIENTATION [None]
  - METABOLIC ACIDOSIS [None]
  - RENAL FAILURE ACUTE [None]
  - KUSSMAUL RESPIRATION [None]
